FAERS Safety Report 7415612-0 (Version None)
Quarter: 2011Q2

REPORT INFORMATION
  Report Type: 
  Country: None (occurrence: None)
  Receive Date: 20110414
  Receipt Date: 20110411
  Transmission Date: 20111010
  Serious: Yes (Death)
  Sender: FDA-Public Use
  Company Number: US-GILEAD-2011-0037961

PATIENT
  Sex: Female
  Weight: 108.96 kg

DRUGS (11)
  1. LETAIRIS [Suspect]
     Indication: PULMONARY HYPERTENSION
     Route: 048
     Dates: start: 20100812, end: 20110325
  2. REVATIO [Concomitant]
  3. PENTOXIFYLLINE [Concomitant]
  4. SYMBICORT [Concomitant]
  5. FUROSEMIDE [Concomitant]
  6. LISINOPRIL [Concomitant]
  7. JANUVIA [Concomitant]
  8. CYMBALTA [Concomitant]
  9. AMLODIPINE [Concomitant]
  10. METFORMIN [Concomitant]
  11. HYDROCODONE [Concomitant]

REACTIONS (1)
  - DEATH [None]
